FAERS Safety Report 11272165 (Version 2)
Quarter: 2015Q3

REPORT INFORMATION
  Report Type: Not Available
  Country: FR (occurrence: FR)
  Receive Date: 20150715
  Receipt Date: 20150824
  Transmission Date: 20151125
  Serious: Yes (Hospitalization)
  Sender: FDA-Public Use
  Company Number: FR-BEH-2015052398

PATIENT
  Age: 58 Year
  Sex: Female

DRUGS (4)
  1. PRIVIGEN [Suspect]
     Active Substance: HUMAN IMMUNOGLOBULIN G
  2. BACLOFENE [Concomitant]
     Active Substance: BACLOFEN
  3. PRIVIGEN [Suspect]
     Active Substance: HUMAN IMMUNOGLOBULIN G
  4. PRIVIGEN [Suspect]
     Active Substance: HUMAN IMMUNOGLOBULIN G
     Indication: ENCEPHALITIS BRAIN STEM
     Route: 042
     Dates: start: 20150526, end: 20150529

REACTIONS (2)
  - Autoimmune haemolytic anaemia [Recovering/Resolving]
  - Pallor [Unknown]

NARRATIVE: CASE EVENT DATE: 20150605
